FAERS Safety Report 15367012 (Version 1)
Quarter: 2018Q3

REPORT INFORMATION
  Report Type: Spontaneous
  Country: US (occurrence: US)
  Receive Date: 20180902
  Receipt Date: 20180902
  Transmission Date: 20181010
  Serious: Yes (Hospitalization)
  Sender: FDA-Public Use
  Company Number: None

PATIENT
  Age: 28 Year
  Sex: Female
  Weight: 110.68 kg

DRUGS (3)
  1. NEXPLANON [Suspect]
     Active Substance: ETONOGESTREL
  2. WOMENS DAILY VITAMINS [Concomitant]
  3. IBUPROFEN 800 [Concomitant]
     Active Substance: IBUPROFEN

REACTIONS (9)
  - Medical device site scar [None]
  - Abortion spontaneous [None]
  - Pregnancy with implant contraceptive [None]
  - Complication of device removal [None]
  - Procedural pain [None]
  - Vaginal haemorrhage [None]
  - Pain [None]
  - Pregnancy [None]
  - Incision site complication [None]

NARRATIVE: CASE EVENT DATE: 20170513
